FAERS Safety Report 14144231 (Version 1)
Quarter: 2017Q4

REPORT INFORMATION
  Report Type: Spontaneous
  Country: US (occurrence: US)
  Receive Date: 20171031
  Receipt Date: 20171031
  Transmission Date: 20180321
  Serious: No
  Sender: FDA-Public Use
  Company Number: US-ASTRAZENECA-2017SF10196

PATIENT
  Sex: Male

DRUGS (1)
  1. NEXIUM 24HR [Suspect]
     Active Substance: ESOMEPRAZOLE MAGNESIUM
     Dosage: UNK (IN THE MORNING RIGHT BEFORE HE EATS/FOR 14 DAYS)
     Route: 048
     Dates: start: 201710

REACTIONS (2)
  - Gastrooesophageal reflux disease [Unknown]
  - Bacterial infection [Unknown]

NARRATIVE: CASE EVENT DATE: 201710
